FAERS Safety Report 25976013 (Version 2)
Quarter: 2025Q4

REPORT INFORMATION
  Report Type: Spontaneous
  Country: JP (occurrence: JP)
  Receive Date: 20251029
  Receipt Date: 20251223
  Transmission Date: 20260118
  Serious: Yes (Hospitalization, Other)
  Sender: BRISTOL-MYERS SQUIBB COMPANY
  Company Number: JP-BRISTOL-MYERS SQUIBB COMPANY-2025-146313

PATIENT

DRUGS (3)
  1. YERVOY [Suspect]
     Active Substance: IPILIMUMAB
     Indication: Malignant melanoma
     Dosage: APPROXIMATELY 2 DOSES
     Route: 041
     Dates: start: 202407, end: 202409
  2. OPDIVO [Suspect]
     Active Substance: NIVOLUMAB
     Indication: Malignant melanoma
     Dosage: APPROXIMATELY 2 DOSES
     Route: 041
     Dates: start: 202407, end: 202409
  3. OPDIVO [Suspect]
     Active Substance: NIVOLUMAB
     Route: 041
     Dates: start: 202410, end: 202503

REACTIONS (4)
  - Immune-mediated dermatitis [Recovering/Resolving]
  - Metastases to central nervous system [Unknown]
  - Immune-mediated enterocolitis [Unknown]
  - Anaemia [Unknown]

NARRATIVE: CASE EVENT DATE: 20240101
